FAERS Safety Report 24151317 (Version 2)
Quarter: 2024Q3

REPORT INFORMATION
  Report Type: Spontaneous
  Country: US (occurrence: US)
  Receive Date: 20240730
  Receipt Date: 20240801
  Transmission Date: 20241017
  Serious: No
  Sender: GLENMARK
  Company Number: US-GLENMARK PHARMACEUTICALS-2024GMK088163

PATIENT

DRUGS (1)
  1. MUPIROCIN [Suspect]
     Active Substance: MUPIROCIN
     Indication: Product used for unknown indication
     Dosage: UNK, BID
     Route: 065
     Dates: start: 20231220

REACTIONS (6)
  - Product use issue [Unknown]
  - Therapy interrupted [Unknown]
  - Product closure removal difficult [Unknown]
  - Product primary packaging issue [Unknown]
  - Product packaging quantity issue [Unknown]
  - Product label issue [Unknown]

NARRATIVE: CASE EVENT DATE: 20231222
